FAERS Safety Report 7183318-1 (Version None)
Quarter: 2010Q4

REPORT INFORMATION
  Report Type: 
  Country: None (occurrence: None)
  Receive Date: 20101222
  Receipt Date: 20101005
  Transmission Date: 20110411
  Serious: No
  Sender: FDA-Public Use
  Company Number: A0885971A

PATIENT
  Age: 9 Year
  Sex: Female

DRUGS (3)
  1. FLONASE [Suspect]
     Route: 045
     Dates: end: 20100825
  2. SINGULAIR [Concomitant]
  3. ZANTAC [Concomitant]

REACTIONS (2)
  - POLLAKIURIA [None]
  - RESTLESSNESS [None]
